FAERS Safety Report 24449311 (Version 1)
Quarter: 2024Q4

REPORT INFORMATION
  Report Type: Spontaneous
  Country: ES (occurrence: ES)
  Receive Date: 20241017
  Receipt Date: 20241017
  Transmission Date: 20250115
  Serious: Yes (Hospitalization, Other)
  Sender: RANBAXY
  Company Number: ES-SUN PHARMACEUTICAL INDUSTRIES LTD-2023R1-380379

PATIENT
  Age: 65 Year
  Sex: Male

DRUGS (25)
  1. CYCLOSPORINE [Suspect]
     Active Substance: CYCLOSPORINE
     Indication: Immunosuppressant drug therapy
     Dosage: 50 MILLIGRAM
     Route: 048
  2. EVEROLIMUS [Suspect]
     Active Substance: EVEROLIMUS
     Indication: Immunosuppressant drug therapy
     Dosage: 1.5 MILLIGRAM, QD
     Route: 065
  3. EVEROLIMUS [Suspect]
     Active Substance: EVEROLIMUS
     Dosage: 2 MILLIGRAM, QD
     Route: 065
  4. HERBALS\PLANTAGO OVATA LEAF [Suspect]
     Active Substance: HERBALS\PLANTAGO OVATA LEAF
     Indication: Laxative supportive care
     Dosage: 3.5 MILLIGRAM
     Route: 065
  5. LACOSAMIDE [Concomitant]
     Active Substance: LACOSAMIDE
     Indication: Prophylaxis
     Dosage: UNK (300)
     Route: 065
  6. CLONAZEPAM [Concomitant]
     Active Substance: CLONAZEPAM
     Indication: Prophylaxis
     Dosage: 2 MILLIGRAM
     Route: 065
  7. CLONAZEPAM [Concomitant]
     Active Substance: CLONAZEPAM
     Dosage: 3 MILLIGRAM
     Route: 065
  8. CLONAZEPAM [Concomitant]
     Active Substance: CLONAZEPAM
     Dosage: 4 MILLIGRAM
     Route: 065
  9. QUETIAPINE [Concomitant]
     Active Substance: QUETIAPINE
     Indication: Neuroleptic malignant syndrome
     Dosage: 100 MILLIGRAM
     Route: 065
  10. OLANZAPINE [Concomitant]
     Active Substance: OLANZAPINE
     Indication: Neuroleptic malignant syndrome
     Dosage: 10 MILLIGRAM
     Route: 065
  11. TIAPRIDE [Concomitant]
     Active Substance: TIAPRIDE
     Indication: Neuroleptic malignant syndrome
     Dosage: 500 MILLIGRAM
     Route: 065
  12. TIAPRIDE [Concomitant]
     Active Substance: TIAPRIDE
     Dosage: 600 MILLIGRAM
     Route: 065
  13. ACENOCOUMAROL [Concomitant]
     Active Substance: ACENOCOUMAROL
     Indication: Antiplatelet therapy
     Dosage: UNK
     Route: 065
  14. BISOPROLOL [Concomitant]
     Active Substance: BISOPROLOL\BISOPROLOL FUMARATE
     Indication: Atrial fibrillation
     Dosage: 2.5 MILLIGRAM
     Route: 065
  15. AMIODARONE [Concomitant]
     Active Substance: AMIODARONE
     Indication: Atrial fibrillation
     Dosage: 100 MILLIGRAM
     Route: 065
  16. PATIROMER [Concomitant]
     Active Substance: PATIROMER
     Indication: Blood potassium increased
     Dosage: 33.6 MILLIGRAM
     Route: 065
  17. PYRIDOXINE HYDROCHLORIDE [Concomitant]
     Active Substance: PYRIDOXINE HYDROCHLORIDE
     Indication: Vitamin supplementation
     Dosage: 150 MILLIGRAM
     Route: 065
  18. SACUBITRIL [Concomitant]
     Active Substance: SACUBITRIL
     Indication: Cardiac failure congestive
     Dosage: 52 MILLIGRAM
     Route: 065
  19. SACUBITRIL [Concomitant]
     Active Substance: SACUBITRIL
     Dosage: 26 MILLIGRAM
     Route: 065
  20. FOLIC ACID [Concomitant]
     Active Substance: FOLIC ACID
     Indication: Vitamin supplementation
     Dosage: 5 MILLIGRAM
     Route: 065
  21. EMPAGLIFLOZIN [Concomitant]
     Active Substance: EMPAGLIFLOZIN
     Indication: Diabetes mellitus
     Dosage: 10 MILLIGRAM
     Route: 048
  22. OMEPRAZOLE [Concomitant]
     Active Substance: OMEPRAZOLE
     Indication: Prophylaxis
     Dosage: 20 MILLIGRAM
     Route: 065
  23. ATORVASTATIN [Concomitant]
     Active Substance: ATORVASTATIN
     Indication: Hypolipidaemia
     Dosage: 20 MILLIGRAM
     Route: 065
  24. FUROSEMIDE [Concomitant]
     Active Substance: FUROSEMIDE
     Indication: Diuretic therapy
     Dosage: 40 MILLIGRAM
     Route: 065
  25. FUROSEMIDE [Concomitant]
     Active Substance: FUROSEMIDE
     Dosage: 20 MILLIGRAM
     Route: 065

REACTIONS (17)
  - Therapeutic product effect incomplete [Unknown]
  - Neuropsychological symptoms [Unknown]
  - Delusion of theft [Unknown]
  - Hallucination [Unknown]
  - Motor dysfunction [Unknown]
  - Intrusive thoughts [Unknown]
  - Agitation [Unknown]
  - Irritability [Unknown]
  - Obsessive thoughts [Unknown]
  - Confusional state [Unknown]
  - Jealous delusion [Unknown]
  - Insomnia [Unknown]
  - Delusion of replacement [Unknown]
  - Delusion [Unknown]
  - Depression [Unknown]
  - Anxiety [Unknown]
  - Affective disorder [Unknown]
